FAERS Safety Report 6603198-X (Version None)
Quarter: 2010Q1

REPORT INFORMATION
  Report Type: 
  Country: None (occurrence: None)
  Receive Date: 20100226
  Receipt Date: 20100215
  Transmission Date: 20100710
  Serious: Yes (Life-Threatening, Hospitalization, Disabling)
  Sender: FDA-Public Use
  Company Number: SE-PFIZER INC-2010019593

PATIENT
  Age: 31 Year
  Sex: Male
  Weight: 155 kg

DRUGS (4)
  1. SOMATROPIN [Suspect]
     Indication: HYPOPITUITARISM
     Dosage: 0.6 MG, 1X/DAY
     Dates: start: 19930101
  2. MINRIN [Concomitant]
     Dosage: 60 UG, 3+3+0+4
  3. LEVOTHYROXINE SODIUM [Concomitant]
     Dosage: 100 UG, 2 1/2X1
  4. TESTOSTERONE [Concomitant]
     Dosage: 4 ML, EVERY 3RD MONTH

REACTIONS (3)
  - CARDIAC FAILURE [None]
  - CONGESTIVE CARDIOMYOPATHY [None]
  - VENTRICULAR ARRHYTHMIA [None]
